FAERS Safety Report 11121727 (Version 1)
Quarter: 2015Q2

REPORT INFORMATION
  Report Type: Report from Study
  Country: BD (occurrence: BD)
  Receive Date: 20150519
  Receipt Date: 20150519
  Transmission Date: 20150821
  Serious: Yes (Death)
  Sender: FDA-Public Use
  Company Number: BD-SA-2015SA065356

PATIENT
  Age: 62 Year
  Sex: Female
  Weight: 46 kg

DRUGS (5)
  1. ATENOLOL. [Concomitant]
     Active Substance: ATENOLOL
     Indication: HYPERTENSION
     Dosage: DOSE: 1+0+0?TREATMENT STAR DATE: 10 YEARS AGO
     Route: 048
     Dates: start: 2005, end: 20150411
  2. AMLODIPINE [Concomitant]
     Active Substance: AMLODIPINE BESYLATE
     Indication: HYPERTENSION
     Dosage: DOSE:1+0+0?TREATMENT STAR DATE: 10 YEARS AGO
     Route: 048
     Dates: start: 2005, end: 20150411
  3. LANTUS [Suspect]
     Active Substance: INSULIN GLARGINE
     Indication: TYPE 2 DIABETES MELLITUS
     Route: 058
     Dates: start: 20150305, end: 20150411
  4. INSULIN GLULISINE [Concomitant]
     Active Substance: INSULIN GLULISINE
     Indication: DIABETES MELLITUS
     Dosage: 10+8+6IU
     Route: 058
     Dates: start: 20150305, end: 20150411
  5. LOSARTAN POTASSIUM. [Concomitant]
     Active Substance: LOSARTAN POTASSIUM
     Indication: HYPERTENSION
     Dosage: TREATMENT STAR DATE: 10 YEARS AGO?DOSE:0+0+1
     Route: 048
     Dates: start: 2005, end: 20150411

REACTIONS (2)
  - Haemorrhagic stroke [Fatal]
  - Loss of consciousness [Fatal]

NARRATIVE: CASE EVENT DATE: 20150411
